FAERS Safety Report 23047909 (Version 2)
Quarter: 2023Q4

REPORT INFORMATION
  Report Type: Spontaneous
  Country: FR (occurrence: None)
  Receive Date: 20231010
  Receipt Date: 20231012
  Transmission Date: 20240110
  Serious: Yes (Hospitalization)
  Sender: FDA-Public Use
  Company Number: FR-Orion Corporation ORION PHARMA-TREX2023-0225

PATIENT
  Age: 65 Year
  Sex: Female
  Weight: 65 kg

DRUGS (12)
  1. METHOTREXATE SODIUM [Suspect]
     Active Substance: METHOTREXATE SODIUM
     Indication: Rheumatoid arthritis
     Dosage: STRENGTH: 10 MG
     Dates: start: 201706
  2. METHOTREXATE SODIUM [Suspect]
     Active Substance: METHOTREXATE SODIUM
     Dosage: STRENGTH: 10 MG
  3. METHOTREXATE SODIUM [Suspect]
     Active Substance: METHOTREXATE SODIUM
     Dosage: STRENGTH: 10 MG
     Dates: end: 20230601
  4. ESCITALOPRAM OXALATE [Concomitant]
     Active Substance: ESCITALOPRAM OXALATE
     Dosage: STRENGTH: 10 MG
  5. OLUMIANT [Concomitant]
     Active Substance: BARICITINIB
     Indication: Rheumatoid arthritis
     Dosage: STRENGTH: 4 MG
     Dates: start: 20180501, end: 20230601
  6. DEXERYL [Concomitant]
  7. PANTOPRAZOLE [Concomitant]
     Active Substance: PANTOPRAZOLE
  8. ALEPSAL [Concomitant]
     Dosage: STRENGTH: 100 MG
  9. DERMOVAL [Concomitant]
     Dosage: STRENGTH: 0.05 PERCENT
  10. ATORVASTATIN [Concomitant]
     Active Substance: ATORVASTATIN
  11. DOLIPRANE [Concomitant]
     Active Substance: ACETAMINOPHEN
  12. NASONEX [Concomitant]
     Active Substance: MOMETASONE FUROATE
     Dosage: STRENGTH: 50 MICROGRAM/DOSE

REACTIONS (1)
  - Marginal zone lymphoma [Not Recovered/Not Resolved]

NARRATIVE: CASE EVENT DATE: 20230401
